FAERS Safety Report 7327400-4 (Version None)
Quarter: 2011Q1

REPORT INFORMATION
  Report Type: 
  Country: None (occurrence: None)
  Receive Date: 20110302
  Receipt Date: 20090529
  Transmission Date: 20110831
  Serious: Yes (Other)
  Sender: FDA-Public Use
  Company Number: US-BAYER-200921116NA

PATIENT
  Sex: Male
  Weight: 99.773 kg

DRUGS (41)
  1. MONOPRIL [Concomitant]
  2. ALLOPURINOL [Concomitant]
  3. FOSRENOL [Concomitant]
     Indication: BLOOD PHOSPHORUS ABNORMAL
     Dosage: 1000 MG, TID
     Route: 048
     Dates: end: 20010128
  4. BENADRYL [Concomitant]
  5. CEFEPIME [Concomitant]
  6. ULTRAVIST (PHARMACY BULK) [Concomitant]
     Indication: COMPUTERISED TOMOGRAM THORAX
     Dosage: UNK
     Dates: start: 20021231, end: 20021231
  7. ULTRAVIST (PHARMACY BULK) [Concomitant]
     Indication: COMPUTERISED TOMOGRAM ABDOMEN
     Dosage: UNK
     Dates: start: 20030110, end: 20030110
  8. MAGNEVIST [Suspect]
     Indication: VENOGRAM
  9. OPTIMARK [Suspect]
     Indication: NUCLEAR MAGNETIC RESONANCE IMAGING
  10. NIFEREX [POLYSACCHARIDE-IRON COMPLEX] [Concomitant]
     Dosage: 150 MG, BID
  11. PRAVACHOL [Concomitant]
     Dosage: 20 MG, HS
  12. LEXAPRO [Concomitant]
     Indication: DEPRESSION
     Dosage: 10 MG, QD
  13. RENAGEL [Concomitant]
  14. NEORAL [Concomitant]
     Indication: TRANSPLANT
     Dosage: UNK
     Dates: start: 19990101, end: 20020101
  15. INSULIN [INSULIN] [Concomitant]
     Indication: DIABETES MELLITUS
     Dosage: UNK
     Dates: start: 20010101, end: 20020101
  16. PREDNISONE TAB [Concomitant]
     Indication: TRANSPLANT
     Dosage: UNK
     Dates: start: 19990101, end: 20020101
  17. CARDIZEM [Concomitant]
     Indication: HYPERTENSION
     Dosage: 240 MG DAILY
     Dates: start: 20020101, end: 20030101
  18. MAGNEVIST [Suspect]
     Dosage: 40 ML,
     Dates: start: 20021202, end: 20021202
  19. GADOLINIUM IN UNSPECIFIED DRUG [Suspect]
     Indication: NUCLEAR MAGNETIC RESONANCE IMAGING
     Dosage: UNK
     Dates: start: 20050614, end: 20050614
  20. CELLCEPT [Concomitant]
     Dosage: 1000 MG, BID
  21. PHOSLO [Concomitant]
     Indication: BLOOD PHOSPHORUS ABNORMAL
     Dosage: 1334 MG, TID
     Route: 048
     Dates: end: 20090415
  22. DEMADEX [Concomitant]
     Dosage: 100 MG, QD
  23. NEPHROCAPS [FOLIC ACID,VITAMINS NOS] [Concomitant]
     Dosage: 1 CAP DAILY
     Dates: end: 20090415
  24. LASIX [Concomitant]
     Dosage: 40 MG, UNK
  25. COLACE [Concomitant]
  26. MAGNEVIST [Suspect]
     Indication: ANGIOGRAM
     Dosage: 50 ML,
     Dates: start: 20030619, end: 20030619
  27. GADOLINIUM IN UNSPECIFIED DRUG [Suspect]
     Dosage: UNK
     Dates: start: 20060627, end: 20060627
  28. ZAROXOLYN [Concomitant]
     Dosage: 5 MG, QD
  29. HALDOL [Concomitant]
  30. ULTRAVIST (PHARMACY BULK) [Concomitant]
     Indication: DIALYSIS DEVICE INSERTION
     Dosage: UNK
     Dates: start: 20030117, end: 20030117
  31. PROHANCE [Suspect]
     Indication: NUCLEAR MAGNETIC RESONANCE IMAGING
  32. COUMADIN [Concomitant]
     Indication: COAGULOPATHY
     Dosage: 5 MG, UNK
     Route: 048
     Dates: start: 20030101, end: 20090101
  33. SENSIPAR [Concomitant]
     Indication: PHOSPHORUS METABOLISM DISORDER
     Dosage: 30 MG, QD
     Route: 048
     Dates: end: 20090415
  34. EPOGEN [Concomitant]
     Indication: ANAEMIA OF CHRONIC DISEASE
     Dosage: UNK
     Dates: start: 20020101, end: 20030101
  35. MYCELEX [Concomitant]
     Dosage: 10 MG, TID
  36. ULTRAVIST (PHARMACY BULK) [Concomitant]
     Dosage: UNK
     Dates: start: 20030622, end: 20030622
  37. OMNISCAN [Suspect]
     Indication: NUCLEAR MAGNETIC RESONANCE IMAGING
  38. PAXIL [Concomitant]
  39. MAGNEVIST [Suspect]
     Indication: NUCLEAR MAGNETIC RESONANCE IMAGING
     Dosage: DAILY DOSE 40 ML
     Dates: start: 20021115, end: 20021115
  40. MULTIHANCE [Suspect]
     Indication: NUCLEAR MAGNETIC RESONANCE IMAGING
  41. LABETALOL HCL [Concomitant]
     Dosage: 300 MG, BID

REACTIONS (20)
  - DEFORMITY [None]
  - OCULAR ICTERUS [None]
  - PAIN [None]
  - GENERAL PHYSICAL HEALTH DETERIORATION [None]
  - MOBILITY DECREASED [None]
  - QUALITY OF LIFE DECREASED [None]
  - SKIN TIGHTNESS [None]
  - SKIN INDURATION [None]
  - SKIN HYPERPIGMENTATION [None]
  - MYALGIA [None]
  - JOINT CONTRACTURE [None]
  - MUSCULOSKELETAL STIFFNESS [None]
  - ARTHRALGIA [None]
  - FATIGUE [None]
  - SCAR [None]
  - ANXIETY [None]
  - EMOTIONAL DISTRESS [None]
  - SKIN HYPERTROPHY [None]
  - NEPHROGENIC SYSTEMIC FIBROSIS [None]
  - SKIN FIBROSIS [None]
